FAERS Safety Report 5511971-4 (Version None)
Quarter: 2007Q4

REPORT INFORMATION
  Report Type: 
  Country: None (occurrence: None)
  Receive Date: 20071109
  Receipt Date: 20071101
  Transmission Date: 20080405
  Serious: Yes (Hospitalization)
  Sender: FDA-Public Use
  Company Number: JP-MERCK-0711USA01514

PATIENT
  Sex: Male

DRUGS (2)
  1. DECADRON [Suspect]
     Indication: MENINGIOMA
     Route: 048
  2. VELCADE [Suspect]
     Indication: MENINGIOMA
     Route: 042

REACTIONS (1)
  - VARICELLA [None]
